FAERS Safety Report 6801227-1 (Version None)
Quarter: 2010Q2

REPORT INFORMATION
  Report Type: 
  Country: None (occurrence: None)
  Receive Date: 20100629
  Receipt Date: 20100622
  Transmission Date: 20101027
  Serious: Yes (Other)
  Sender: FDA-Public Use
  Company Number: TR-BAYER-201030167GPV

PATIENT
  Age: 26 Year
  Sex: Female

DRUGS (6)
  1. PSEUDOEPHEDRINE [Suspect]
     Indication: DRUG USE FOR UNKNOWN INDICATION
     Route: 048
  2. ACETAMINOPHEN [Suspect]
     Indication: DRUG USE FOR UNKNOWN INDICATION
     Route: 048
  3. CHLORPHENIRAMINE MALEATE [Suspect]
     Indication: DRUG USE FOR UNKNOWN INDICATION
     Route: 048
  4. OXALAMINE CITRATE [Suspect]
     Indication: DRUG USE FOR UNKNOWN INDICATION
     Route: 048
  5. ETOMIDATE [Concomitant]
     Indication: SEDATION
     Dosage: AS USED: 10 MG  UNIT DOSE: 10 MG
     Route: 042
  6. FENTANYL [Concomitant]
     Indication: ANALGESIC THERAPY
     Dosage: AS USED: 50 MG  UNIT DOSE: 50 MG
     Route: 042

REACTIONS (4)
  - ABDOMINAL PAIN [None]
  - NAUSEA [None]
  - PALPITATIONS [None]
  - SUPRAVENTRICULAR TACHYCARDIA [None]
